FAERS Safety Report 7275364-4 (Version None)
Quarter: 2011Q1

REPORT INFORMATION
  Report Type: 
  Country: None (occurrence: None)
  Receive Date: 20110131
  Receipt Date: 20110126
  Transmission Date: 20110831
  Serious: Yes (Other)
  Sender: FDA-Public Use
  Company Number: FR-1184816

PATIENT
  Sex: Female

DRUGS (1)
  1. TRAVATAN [Suspect]
     Dosage: OPHTHALMIC
     Route: 047

REACTIONS (4)
  - TENDON RUPTURE [None]
  - THROAT IRRITATION [None]
  - DYSPNOEA [None]
  - DYSPHONIA [None]
